FAERS Safety Report 8507604-5 (Version None)
Quarter: 2012Q3

REPORT INFORMATION
  Report Type: 
  Country: None (occurrence: None)
  Receive Date: 20120713
  Receipt Date: 20120706
  Transmission Date: 20120928
  Serious: No
  Sender: FDA-Public Use
  Company Number: US-BIOGENIDEC-2012BI024349

PATIENT
  Age: 53 Year
  Sex: Female

DRUGS (2)
  1. AVONEX [Suspect]
     Indication: MULTIPLE SCLEROSIS
     Route: 030
     Dates: start: 20090425, end: 20110628
  2. AVONEX [Suspect]
     Route: 030

REACTIONS (3)
  - LOSS OF CONTROL OF LEGS [None]
  - MOBILITY DECREASED [None]
  - DYSARTHRIA [None]
